FAERS Safety Report 23714605 (Version 1)
Quarter: 2024Q2

REPORT INFORMATION
  Report Type: Spontaneous
  Country: US (occurrence: US)
  Receive Date: 20240406
  Receipt Date: 20240406
  Transmission Date: 20240715
  Serious: No
  Sender: FDA-Public Use
  Company Number: US-ABBVIE-5703837

PATIENT

DRUGS (1)
  1. VENCLEXTA [Suspect]
     Active Substance: VENETOCLAX
     Indication: Product used for unknown indication
     Route: 048

REACTIONS (6)
  - Respiratory symptom [Unknown]
  - Upper-airway cough syndrome [Unknown]
  - Constipation [Unknown]
  - Osteoarthritis [Unknown]
  - Cough [Unknown]
  - Rhinorrhoea [Unknown]
